FAERS Safety Report 15604366 (Version 1)
Quarter: 2018Q4

REPORT INFORMATION
  Report Type: Spontaneous
  Country: US (occurrence: US)
  Receive Date: 20181110
  Receipt Date: 20181110
  Transmission Date: 20190205
  Serious: No
  Sender: FDA-Public Use
  Company Number: US-IPSEN BIOPHARMACEUTICALS, INC.-2018-16998

PATIENT
  Sex: Female

DRUGS (7)
  1. SANDOSTATIN LAR DEPOT [Concomitant]
     Active Substance: OCTREOTIDE ACETATE
     Dosage: 120 MG/ 5 ML
  2. BUPROPION. [Concomitant]
     Active Substance: BUPROPION
  3. AFINITOR [Concomitant]
     Active Substance: EVEROLIMUS
  4. SIMVASTATIN. [Concomitant]
     Active Substance: SIMVASTATIN
  5. DIOVAN [Concomitant]
     Active Substance: VALSARTAN
  6. CREON [Concomitant]
     Active Substance: PANCRELIPASE AMYLASE\PANCRELIPASE LIPASE\PANCRELIPASE PROTEASE
     Dosage: 3000-9500 UNIT
  7. XERMELO [Suspect]
     Active Substance: TELOTRISTAT ETHYL
     Indication: CARCINOID SYNDROME
     Route: 048
     Dates: start: 20180327

REACTIONS (1)
  - Bronchitis [Recovering/Resolving]

NARRATIVE: CASE EVENT DATE: 2018
